FAERS Safety Report 9459351 (Version 4)
Quarter: 2013Q4

REPORT INFORMATION
  Report Type: Spontaneous
  Country: US (occurrence: US)
  Receive Date: 20130815
  Receipt Date: 20131225
  Transmission Date: 20140711
  Serious: Yes (Other)
  Sender: FDA-Public Use
  Company Number: US-BIOGENIDEC-2013BI072940

PATIENT
  Age: 41 Year
  Sex: Female

DRUGS (13)
  1. TECFIDERA [Suspect]
     Indication: MULTIPLE SCLEROSIS
     Route: 048
  2. AMPYRA [Concomitant]
     Indication: PRODUCT USED FOR UNKNOWN INDICATION
     Route: 048
  3. MAGNESIUM [Concomitant]
  4. CALCIUM [Concomitant]
  5. ATARAX [Concomitant]
  6. XOLAIR [Concomitant]
  7. LYRICA [Concomitant]
  8. IMITREX [Concomitant]
  9. EFFEXOR [Concomitant]
  10. AMBIEN [Concomitant]
  11. VITAMIN D [Concomitant]
  12. VITAMIN B12 [Concomitant]
  13. KLONOPIN [Concomitant]

REACTIONS (7)
  - Autoimmune thyroiditis [Unknown]
  - Fatigue [Unknown]
  - Vomiting [Unknown]
  - Nausea [Unknown]
  - Urticaria [Unknown]
  - Multiple sclerosis [Unknown]
  - Stress [Unknown]
